FAERS Safety Report 12476338 (Version 1)
Quarter: 2016Q2

REPORT INFORMATION
  Report Type: Spontaneous
  Country: US (occurrence: US)
  Receive Date: 20160617
  Receipt Date: 20160617
  Transmission Date: 20160815
  Serious: Yes (Other)
  Sender: FDA-Public Use
  Company Number: US-BAYER-2016-115128

PATIENT
  Age: 65 Year
  Sex: Male

DRUGS (3)
  1. ACETYLSALICYLIC ACID({=100 MG) [Suspect]
     Active Substance: ASPIRIN
  2. CLOPIDOGREL [Interacting]
     Active Substance: CLOPIDOGREL BISULFATE
  3. HEPARIN [Interacting]
     Active Substance: HEPARIN SODIUM

REACTIONS (5)
  - Gastrointestinal haemorrhage [None]
  - Gastric ulcer [None]
  - Gastrointestinal polyp haemorrhage [None]
  - Drug administration error [None]
  - Labelled drug-drug interaction medication error [None]
